FAERS Safety Report 6729717-0 (Version None)
Quarter: 2010Q2

REPORT INFORMATION
  Report Type: 
  Country: None (occurrence: None)
  Receive Date: 20100518
  Receipt Date: 20100505
  Transmission Date: 20101027
  Serious: Yes (Other)
  Sender: FDA-Public Use
  Company Number: US-JNJFOC-20100502880

PATIENT
  Sex: Male

DRUGS (4)
  1. CHILDREN'S TYLENOL PLUS COUGH + SORE THROAT CHERRY [Suspect]
     Indication: INFLUENZA
  2. CHILDREN'S TYLENOL PLUS COUGH + SORE THROAT CHERRY [Suspect]
     Indication: OROPHARYNGEAL PAIN
  3. CHILDREN'S TYLENOL LIQUID VERY BERRY STRAWBERRY [Suspect]
     Route: 048
  4. CHILDREN'S TYLENOL LIQUID VERY BERRY STRAWBERRY [Suspect]
     Indication: INFLUENZA
     Route: 048

REACTIONS (2)
  - HYPERSENSITIVITY [None]
  - PRODUCT QUALITY ISSUE [None]
